FAERS Safety Report 10268973 (Version 1)
Quarter: 2014Q2

REPORT INFORMATION
  Report Type: Spontaneous
  Country: GB (occurrence: GB)
  Receive Date: 20140630
  Receipt Date: 20140630
  Transmission Date: 20141212
  Serious: Yes (Other)
  Sender: FDA-Public Use
  Company Number: GB-WATSON-2014-13898

PATIENT
  Age: 51 Year
  Sex: Female
  Weight: 64 kg

DRUGS (1)
  1. TRIMETHOPRIM (UNKNOWN) [Suspect]
     Indication: CYSTITIS
     Dosage: 200 MG, BID
     Route: 048
     Dates: start: 20140605, end: 20140607

REACTIONS (5)
  - Blister [Not Recovered/Not Resolved]
  - Pain of skin [Not Recovered/Not Resolved]
  - Back pain [Recovering/Resolving]
  - Malaise [Recovered/Resolved]
  - Musculoskeletal stiffness [Recovered/Resolved]
